FAERS Safety Report 13574560 (Version 1)
Quarter: 2017Q2

REPORT INFORMATION
  Report Type: Spontaneous
  Country: US (occurrence: US)
  Receive Date: 20170523
  Receipt Date: 20170523
  Transmission Date: 20170830
  Serious: No
  Sender: FDA-Public Use
  Company Number: US-DRREDDYS-USA/USA/16/0084608

PATIENT
  Sex: Male
  Weight: 101.6 kg

DRUGS (2)
  1. METFORMIN [Concomitant]
     Active Substance: METFORMIN HYDROCHLORIDE
     Indication: OBESITY
     Route: 065
  2. ZENATANE [Suspect]
     Active Substance: ISOTRETINOIN
     Indication: ACNE CYSTIC
     Route: 048
     Dates: start: 20160928, end: 20161028

REACTIONS (1)
  - Hepatic enzyme increased [Unknown]
